FAERS Safety Report 18080912 (Version 1)
Quarter: 2020Q3

REPORT INFORMATION
  Report Type: Spontaneous
  Country: US (occurrence: US)
  Receive Date: 20200728
  Receipt Date: 20200728
  Transmission Date: 20201103
  Serious: Yes (Other)
  Sender: FDA-Public Use
  Company Number: US-BAYER-2020-150627

PATIENT
  Age: 91 Year
  Sex: Male

DRUGS (3)
  1. BAYER LOW DOSE [Suspect]
     Active Substance: ASPIRIN
     Indication: CEREBROVASCULAR ACCIDENT
     Dosage: A FULL ASPIRIN, QD
  2. WARFARIN [Concomitant]
     Active Substance: WARFARIN
  3. BAYER LOW DOSE [Suspect]
     Active Substance: ASPIRIN
     Indication: CEREBROVASCULAR ACCIDENT
     Dosage: 2 DF
     Route: 048

REACTIONS (4)
  - Haemorrhage [None]
  - Increased tendency to bruise [None]
  - Off label use [Unknown]
  - Product use in unapproved indication [Unknown]
